FAERS Safety Report 4844196-6 (Version None)
Quarter: 2005Q4

REPORT INFORMATION
  Report Type: 
  Country: None (occurrence: None)
  Receive Date: 20051202
  Receipt Date: 20051122
  Transmission Date: 20060501
  Serious: Yes (Hospitalization)
  Sender: FDA-Public Use
  Company Number: FR-ABBOTT-05P-056-0318017-00

PATIENT
  Age: 17 Year
  Sex: Female

DRUGS (9)
  1. DEPAKENE [Suspect]
     Indication: MYOCLONIC EPILEPSY
     Route: 048
     Dates: start: 19970101, end: 20040101
  2. DEPAKOTE GRANULE [Suspect]
     Indication: MYOCLONIC EPILEPSY
     Route: 048
     Dates: start: 20040101, end: 20051101
  3. DEPAKENE [Suspect]
     Indication: MYOCLONIC EPILEPSY
     Route: 048
     Dates: start: 20051101, end: 20051101
  4. DEPAKENE [Suspect]
     Route: 048
     Dates: start: 20051101, end: 20051109
  5. CYANOCOBALAMIN [Suspect]
     Indication: BONE MARROW FAILURE
     Dates: start: 20030101
  6. CYANOCOBALAMIN [Suspect]
     Route: 030
     Dates: start: 20051101, end: 20051101
  7. CLONAZEPAM [Concomitant]
     Indication: MYOCLONIC EPILEPSY
     Route: 065
     Dates: start: 19970101
  8. PIRACETAM [Concomitant]
     Indication: MYOCLONIC EPILEPSY
     Route: 065
     Dates: start: 20050901
  9. LEDERFOLINE [Concomitant]
     Indication: BONE MARROW FAILURE

REACTIONS (10)
  - ANOREXIA [None]
  - BONE MARROW FAILURE [None]
  - DISTURBANCE IN ATTENTION [None]
  - DRUG LEVEL INCREASED [None]
  - FOLATE DEFICIENCY [None]
  - LETHARGY [None]
  - MYOCLONIC EPILEPSY [None]
  - POSTICTAL STATE [None]
  - SOMNOLENCE [None]
  - VOMITING [None]
